FAERS Safety Report 7057621-X (Version None)
Quarter: 2010Q4

REPORT INFORMATION
  Report Type: 
  Country: None (occurrence: None)
  Receive Date: 20101022
  Receipt Date: 20101018
  Transmission Date: 20110411
  Serious: Yes (Other)
  Sender: FDA-Public Use
  Company Number: DE-PFIZER INC-2010131550

PATIENT
  Age: 56 Year
  Sex: Male

DRUGS (1)
  1. SPIRONOLACTONE [Suspect]

REACTIONS (2)
  - GYNAECOMASTIA [None]
  - HEPATIC CIRRHOSIS [None]
